FAERS Safety Report 17997605 (Version 1)
Quarter: 2020Q3

REPORT INFORMATION
  Report Type: Spontaneous
  Country: SE (occurrence: SE)
  Receive Date: 20200708
  Receipt Date: 20200708
  Transmission Date: 20201103
  Serious: Yes (Hospitalization)
  Sender: FDA-Public Use
  Company Number: SE-ANIPHARMA-2020-SE-000025

PATIENT
  Age: 79 Year
  Sex: Male

DRUGS (7)
  1. BICALUTAMIDE. [Suspect]
     Active Substance: BICALUTAMIDE
     Indication: PROSTATE CANCER
     Dosage: 150 MG DAILY
     Route: 048
     Dates: start: 2020, end: 20200414
  2. TRAJENTA [Concomitant]
     Active Substance: LINAGLIPTIN
     Route: 065
  3. TROMBYL [Concomitant]
     Active Substance: ASPIRIN
     Route: 065
  4. LEUPRORELIN [Concomitant]
     Active Substance: LEUPROLIDE ACETATE
     Route: 065
  5. INDERAL [Concomitant]
     Active Substance: PROPRANOLOL HYDROCHLORIDE
  6. PROPAVAN [Concomitant]
     Active Substance: PROPIOMAZINE
     Dosage: 1?2 TABLETS IF NECESSARY
     Route: 065
  7. CANDESARTAN. [Concomitant]
     Active Substance: CANDESARTAN
     Route: 065

REACTIONS (3)
  - Muscular weakness [Unknown]
  - Off label use [Recovered/Resolved]
  - Rhabdomyolysis [Unknown]

NARRATIVE: CASE EVENT DATE: 202004
